FAERS Safety Report 5027067-4 (Version None)
Quarter: 2006Q2

REPORT INFORMATION
  Report Type: 
  Country: None (occurrence: None)
  Receive Date: 20060609
  Receipt Date: 20060531
  Transmission Date: 20061013
  Serious: Yes (Other)
  Sender: FDA-Public Use
  Company Number: 2006050264

PATIENT
  Sex: Female

DRUGS (2)
  1. CELEBREX [Suspect]
     Indication: ILL-DEFINED DISORDER
     Dosage: 200 MG
  2. AMPICILLIN [Suspect]
     Indication: ILL-DEFINED DISORDER

REACTIONS (2)
  - KNEE ARTHROPLASTY [None]
  - PAIN [None]
